FAERS Safety Report 13027598 (Version 2)
Quarter: 2017Q1

REPORT INFORMATION
  Report Type: Spontaneous
  Country: JP (occurrence: JP)
  Receive Date: 20161214
  Receipt Date: 20170127
  Transmission Date: 20170428
  Serious: Yes (Other)
  Sender: FDA-Public Use
  Company Number: JP-ELI_LILLY_AND_COMPANY-JP201610009822

PATIENT
  Age: 63 Year
  Sex: Male
  Weight: 74 kg

DRUGS (5)
  1. BEVACIZUMAB [Suspect]
     Active Substance: BEVACIZUMAB
     Indication: LUNG ADENOCARCINOMA STAGE I
     Dosage: 15 MG/KG, OTHER
     Route: 042
     Dates: start: 20160527, end: 20160708
  2. METHYCOBAL [Concomitant]
     Active Substance: METHYLCOBALAMIN
     Dosage: UNK
     Dates: start: 20160502, end: 20160708
  3. CARBOPLATIN. [Suspect]
     Active Substance: CARBOPLATIN
     Indication: LUNG ADENOCARCINOMA STAGE I
     Dosage: 600 MG, OTHER
     Route: 042
     Dates: start: 20160527, end: 20160708
  4. ALIMTA [Suspect]
     Active Substance: PEMETREXED DISODIUM
     Indication: LUNG ADENOCARCINOMA STAGE I
     Dosage: 500 MG/M2, OTHER
     Route: 042
     Dates: start: 20160527, end: 20160708
  5. PANVITAN                           /05664401/ [Concomitant]
     Dosage: UNK
     Dates: start: 20160521

REACTIONS (2)
  - Platelet count decreased [Recovered/Resolved]
  - Tubulointerstitial nephritis [Not Recovered/Not Resolved]

NARRATIVE: CASE EVENT DATE: 20160722
